FAERS Safety Report 4704006-4 (Version None)
Quarter: 2005Q2

REPORT INFORMATION
  Report Type: 
  Country: None (occurrence: None)
  Receive Date: 20050630
  Receipt Date: 20040705
  Transmission Date: 20051028
  Serious: Yes (Life-Threatening, Hospitalization)
  Sender: FDA-Public Use
  Company Number: DE-ROCHE-373299

PATIENT
  Age: 66 Year
  Sex: Male

DRUGS (20)
  1. DACLIZUMAB [Suspect]
     Route: 042
     Dates: end: 20040527
  2. DACLIZUMAB [Suspect]
     Route: 042
     Dates: start: 20040330
  3. MYCOPHENOLATE MOFETIL [Suspect]
     Route: 048
     Dates: start: 20040601, end: 20040705
  4. MYCOPHENOLATE MOFETIL [Suspect]
     Route: 048
     Dates: start: 20040330, end: 20040330
  5. MYCOPHENOLATE MOFETIL [Suspect]
     Route: 048
     Dates: start: 20040331
  6. MYCOPHENOLATE MOFETIL [Suspect]
     Route: 048
     Dates: end: 20050622
  7. SIROLIMUS [Suspect]
     Route: 048
     Dates: start: 20040526, end: 20040709
  8. SIROLIMUS [Suspect]
     Route: 048
     Dates: start: 20040330
  9. SIROLIMUS [Suspect]
     Route: 048
     Dates: start: 20040402
  10. SIROLIMUS [Suspect]
     Route: 048
     Dates: start: 20040409
  11. SIROLIMUS [Suspect]
     Route: 048
     Dates: start: 20040511
  12. SOLU-DECORTIN H [Suspect]
     Route: 048
     Dates: start: 20040527, end: 20040709
  13. SOLU-DECORTIN H [Suspect]
     Route: 048
     Dates: start: 20040330
  14. SOLU-DECORTIN H [Suspect]
     Route: 048
     Dates: start: 20040331
  15. SOLU-DECORTIN H [Suspect]
     Route: 048
     Dates: start: 20040401
  16. SOLU-DECORTIN H [Suspect]
     Route: 048
     Dates: start: 20040414
  17. SOLU-DECORTIN H [Suspect]
     Route: 048
     Dates: start: 20040427
  18. SOLU-DECORTIN H [Suspect]
     Route: 048
  19. TACROLIMUS [Suspect]
     Route: 048
     Dates: start: 20040712
  20. VALGANCICLOVIR [Concomitant]
     Route: 048
     Dates: start: 20040402, end: 20040705

REACTIONS (5)
  - DIALYSIS [None]
  - LEUKOPENIA [None]
  - RENAL FAILURE [None]
  - TRANSPLANT REJECTION [None]
  - URINARY TRACT INFECTION [None]
